FAERS Safety Report 22168585 (Version 2)
Quarter: 2023Q2

REPORT INFORMATION
  Report Type: Spontaneous
  Country: FR (occurrence: FR)
  Receive Date: 20230403
  Receipt Date: 20230529
  Transmission Date: 20230722
  Serious: Yes (Other)
  Sender: FDA-Public Use
  Company Number: None

PATIENT
  Age: 65 Year
  Sex: Female

DRUGS (5)
  1. KEYTRUDA [Suspect]
     Active Substance: PEMBROLIZUMAB
     Indication: Triple negative breast cancer
     Dosage: C1D1 200MG ; C2D1 200MG ; C3D1 200MG
     Route: 042
     Dates: start: 20221215, end: 20230209
  2. PACLITAXEL [Suspect]
     Active Substance: PACLITAXEL
     Indication: Triple negative breast cancer
     Dosage: C1D1 140MG ; C1D8 CANCELED ; C1D15 140MG ; C2D1 140MG ; C2D8 140MG ; C2D15 140MG ; C3D1 100MG ; C3D8
     Route: 042
     Dates: start: 20221215, end: 20230216
  3. CARBOPLATIN [Suspect]
     Active Substance: CARBOPLATIN
     Indication: Triple negative breast cancer
     Dosage: C1D1 200MG ; C1D8 CANCELED ; C1D15 140MG ; C2D1 200MG ; C2D8 200MG ; C2D15 200MG ; C3D1 160MG ; C3D8
     Route: 042
     Dates: start: 20221215, end: 20230216
  4. METFORMIN [Concomitant]
     Active Substance: METFORMIN HYDROCHLORIDE
  5. AMLODIPINE [Concomitant]
     Active Substance: AMLODIPINE BESYLATE

REACTIONS (1)
  - Neutropenia [Recovering/Resolving]

NARRATIVE: CASE EVENT DATE: 20230118
